FAERS Safety Report 5599486-9 (Version None)
Quarter: 2007Q4

REPORT INFORMATION
  Report Type: 
  Country: None (occurrence: None)
  Receive Date: 20071231
  Receipt Date: 20070824
  Transmission Date: 20080405
  Serious: Yes (Hospitalization)
  Sender: FDA-Public Use
  Company Number: 160735USA

PATIENT
  Sex: Male

DRUGS (1)
  1. FUROSEMIDE TABLETS USP, 20MG AND 40MG (FUROSEMIDE) [Suspect]
     Dosage: (40 MG)
     Dates: start: 20030101

REACTIONS (2)
  - CARDIAC FAILURE CONGESTIVE [None]
  - DRUG INEFFECTIVE [None]
